FAERS Safety Report 25007591 (Version 1)
Quarter: 2025Q1

REPORT INFORMATION
  Report Type: Spontaneous
  Country: FR (occurrence: FR)
  Receive Date: 20250225
  Receipt Date: 20250225
  Transmission Date: 20250408
  Serious: Yes (Hospitalization)
  Sender: CELLTRION
  Company Number: FR-ROCHE-10000061089

PATIENT

DRUGS (3)
  1. TRASTUZUMAB [Suspect]
     Active Substance: TRASTUZUMAB
     Indication: Metastases to meninges
     Route: 037
     Dates: start: 20240611, end: 20240717
  2. CAPECITABINE [Suspect]
     Active Substance: CAPECITABINE
     Indication: Metastases to meninges
     Route: 048
     Dates: start: 20240611, end: 20240717
  3. TUCATINIB [Suspect]
     Active Substance: TUCATINIB
     Indication: Metastases to meninges
     Route: 048
     Dates: start: 20240611, end: 20240805

REACTIONS (4)
  - General physical health deterioration [Not Recovered/Not Resolved]
  - Diarrhoea [Not Recovered/Not Resolved]
  - Intentional product use issue [Unknown]
  - Intentional product use issue [Unknown]

NARRATIVE: CASE EVENT DATE: 20240808
